FAERS Safety Report 5391712-4 (Version None)
Quarter: 2007Q3

REPORT INFORMATION
  Report Type: 
  Country: None (occurrence: None)
  Receive Date: 20070719
  Receipt Date: 20070712
  Transmission Date: 20080115
  Serious: Yes (Hospitalization)
  Sender: FDA-Public Use
  Company Number: DE-MERCK-0707DEU00070

PATIENT
  Age: 70 Year
  Sex: Male

DRUGS (5)
  1. FOSAMAX PLUS D [Suspect]
     Indication: OSTEOPOROSIS
     Route: 048
     Dates: start: 20060501
  2. CALCIUM (UNSPECIFIED) AND VITAMIN D (UNSPECIFIED) [Concomitant]
     Route: 048
  3. MAGNESIUM (UNSPECIFIED) AND ZINC (UNSPECIFIED) [Concomitant]
     Route: 048
  4. SITOSTEROLS [Concomitant]
     Route: 065
  5. PANCREATIN [Concomitant]
     Route: 048

REACTIONS (3)
  - ENTEROCOLITIS [None]
  - GASTRITIS [None]
  - PANCREATIC DISORDER [None]
